FAERS Safety Report 4911137-2 (Version None)
Quarter: 2006Q1

REPORT INFORMATION
  Report Type: 
  Country: None (occurrence: None)
  Receive Date: 20060209
  Receipt Date: 20060126
  Transmission Date: 20060701
  Serious: Yes (Hospitalization)
  Sender: FDA-Public Use
  Company Number: CLOF-10104

PATIENT
  Age: 70 Year
  Sex: Male

DRUGS (6)
  1. CLOFARABINE [Suspect]
     Indication: ACUTE MYELOID LEUKAEMIA
     Dosage: 37 MG/M2 QD X 5 IV
     Route: 042
     Dates: start: 20050606, end: 20050905
  2. ITRACONAZOLE [Concomitant]
  3. CIPROFLOXACILLIN [Concomitant]
  4. COTRIM [Concomitant]
  5. CHLORHEXADINE [Concomitant]
  6. NYSTATIN [Concomitant]

REACTIONS (5)
  - DYSURIA [None]
  - FATIGUE [None]
  - HYPOKALAEMIA [None]
  - SOMNOLENCE [None]
  - URINARY TRACT INFECTION [None]
